FAERS Safety Report 13725995 (Version 1)
Quarter: 2017Q3

REPORT INFORMATION
  Report Type: Spontaneous
  Country: VE (occurrence: VE)
  Receive Date: 20170707
  Receipt Date: 20170707
  Transmission Date: 20171127
  Serious: Yes (Hospitalization, Other)
  Sender: FDA-Public Use
  Company Number: VE-GLAXOSMITHKLINE-VE2017GSK102162

PATIENT
  Age: 29 Year
  Sex: Male

DRUGS (4)
  1. DEXAMETHASONE. [Suspect]
     Active Substance: DEXAMETHASONE
     Indication: ENCEPHALITIS
     Dosage: UNK
     Route: 065
     Dates: start: 201102
  2. VORCUM [Suspect]
     Active Substance: VORICONAZOLE
     Indication: ENCEPHALITIS
     Dosage: UNK
     Route: 065
     Dates: start: 201102
  3. MEROPENEM. [Suspect]
     Active Substance: MEROPENEM
     Indication: ENCEPHALITIS
     Dosage: UNK
     Route: 065
     Dates: start: 201102
  4. VALTREX [Suspect]
     Active Substance: VALACYCLOVIR HYDROCHLORIDE
     Indication: ENCEPHALITIS
     Dosage: UNK
     Route: 065
     Dates: start: 201102

REACTIONS (7)
  - Headache [Unknown]
  - Vomiting [Unknown]
  - Musculoskeletal stiffness [Unknown]
  - Papilloedema [Unknown]
  - Drug effect incomplete [Unknown]
  - Partial seizures [Unknown]
  - Loss of consciousness [Unknown]

NARRATIVE: CASE EVENT DATE: 20110213
